FAERS Safety Report 23524996 (Version 2)
Quarter: 2024Q1

REPORT INFORMATION
  Report Type: Spontaneous
  Country: US (occurrence: US)
  Receive Date: 20240215
  Receipt Date: 20240329
  Transmission Date: 20240410
  Serious: Yes (Hospitalization, Other)
  Sender: FDA-Public Use
  Company Number: US-NOVOPROD-1174441

PATIENT
  Age: 64 Year
  Sex: Female
  Weight: 79.8 kg

DRUGS (2)
  1. OZEMPIC [Suspect]
     Active Substance: SEMAGLUTIDE
     Indication: Type 2 diabetes mellitus
     Dosage: 2 MG
     Route: 058
     Dates: start: 20230601
  2. NovoFine Plus (32G) [Concomitant]
     Indication: Device therapy
     Route: 058
     Dates: start: 20230601

REACTIONS (3)
  - Acute myocardial infarction [Unknown]
  - Coronary artery occlusion [Unknown]
  - Muscle spasms [Unknown]

NARRATIVE: CASE EVENT DATE: 20230623
